FAERS Safety Report 20087782 (Version 1)
Quarter: 2021Q4

REPORT INFORMATION
  Report Type: Spontaneous
  Country: CN (occurrence: CN)
  Receive Date: 20211118
  Receipt Date: 20211118
  Transmission Date: 20220303
  Serious: Yes (Other)
  Sender: FDA-Public Use
  Company Number: CN-PFIZER INC-202101539880

PATIENT
  Age: 9 Year
  Sex: Female

DRUGS (1)
  1. METHYLPREDNISOLONE SODIUM SUCCINATE [Suspect]
     Active Substance: METHYLPREDNISOLONE SODIUM SUCCINATE
     Indication: Therapeutic procedure
     Dosage: 20 MG, 1X/DAY
     Route: 041
     Dates: start: 20211001, end: 20211006

REACTIONS (4)
  - Cushing^s syndrome [Not Recovered/Not Resolved]
  - Ocular hypertension [Unknown]
  - Obesity [Unknown]
  - Skin striae [Unknown]

NARRATIVE: CASE EVENT DATE: 20211014
